FAERS Safety Report 24786557 (Version 1)
Quarter: 2024Q4

REPORT INFORMATION
  Report Type: Spontaneous
  Country: US (occurrence: US)
  Receive Date: 20241230
  Receipt Date: 20241230
  Transmission Date: 20250115
  Serious: No
  Sender: ROCHE
  Company Number: US-ROCHE-10000165113

PATIENT
  Age: 35 Year
  Sex: Male

DRUGS (5)
  1. TOCILIZUMAB [Suspect]
     Active Substance: TOCILIZUMAB
     Indication: Erdheim-Chester disease
     Route: 065
  2. CLADRIBINE [Concomitant]
     Active Substance: CLADRIBINE
  3. HYDROXYUREA [Concomitant]
     Active Substance: HYDROXYUREA
  4. METHOTREXATE [Concomitant]
     Active Substance: METHOTREXATE
  5. COBIMETINIB [Concomitant]
     Active Substance: COBIMETINIB

REACTIONS (1)
  - Disease progression [Unknown]
